FAERS Safety Report 18866118 (Version 1)
Quarter: 2021Q1

REPORT INFORMATION
  Report Type: Spontaneous
  Country: US (occurrence: US)
  Receive Date: 20210209
  Receipt Date: 20210209
  Transmission Date: 20210420
  Serious: Yes (Other)
  Sender: FDA-Public Use
  Company Number: US-GLAXOSMITHKLINE-US2021GSK033418

PATIENT
  Sex: Female

DRUGS (3)
  1. RANITIDINE. [Suspect]
     Active Substance: RANITIDINE
     Indication: COELIAC DISEASE
     Dosage: UNK, QD
     Route: 065
     Dates: start: 201705, end: 201905
  2. RANITIDINE. [Suspect]
     Active Substance: RANITIDINE
     Indication: COELIAC DISEASE
     Dosage: UNK, QD
     Route: 065
     Dates: start: 201705, end: 201905
  3. RANITIDINE HYDROCHLORIDE. [Concomitant]
     Active Substance: RANITIDINE HYDROCHLORIDE
     Indication: COELIAC DISEASE
     Dosage: UNK UNK, QD
     Route: 065
     Dates: start: 201905, end: 202006

REACTIONS (1)
  - Colorectal cancer [Unknown]
